FAERS Safety Report 7055395-X (Version None)
Quarter: 2010Q4

REPORT INFORMATION
  Report Type: 
  Country: None (occurrence: None)
  Receive Date: 20101021
  Receipt Date: 20101011
  Transmission Date: 20110411
  Serious: Yes (Hospitalization, Other)
  Sender: FDA-Public Use
  Company Number: PHHY2010BE67705

PATIENT
  Age: 66 Year
  Sex: Female

DRUGS (6)
  1. EVEROLIMUS [Suspect]
     Indication: HEART TRANSPLANT
     Dosage: UNK
  2. MYCOPHENOLATE MOFETIL [Concomitant]
     Indication: HEART TRANSPLANT
     Dosage: UNK
  3. CYCLOSPORINE [Concomitant]
     Indication: HEART TRANSPLANT
     Dosage: 200 MG PER DAY
  4. THALIDOMIDE [Concomitant]
     Indication: HEART TRANSPLANT
     Dosage: 2X5MG PER DAY
  5. AZATHIOPRINE [Concomitant]
     Indication: HEART TRANSPLANT
     Dosage: UNK
  6. STEROID ANTIBACTERIALS [Concomitant]
     Indication: IMMUNOSUPPRESSION

REACTIONS (6)
  - ANAL ULCER [None]
  - APHTHOUS STOMATITIS [None]
  - CACHEXIA [None]
  - HEART TRANSPLANT REJECTION [None]
  - ODYNOPHAGIA [None]
  - WEIGHT DECREASED [None]
